FAERS Safety Report 14147717 (Version 1)
Quarter: 2017Q4

REPORT INFORMATION
  Report Type: Spontaneous
  Country: SE (occurrence: SE)
  Receive Date: 20171101
  Receipt Date: 20171101
  Transmission Date: 20180321
  Serious: Yes (Other)
  Sender: FDA-Public Use
  Company Number: SE-AMGEN-SWESP2017160586

PATIENT
  Age: 86 Year
  Sex: Female

DRUGS (20)
  1. OXYCODONE [Concomitant]
     Active Substance: OXYCODONE
  2. OMEPRAZOLE. [Concomitant]
     Active Substance: OMEPRAZOLE
  3. MICROLAX [Concomitant]
  4. ASACOL [Concomitant]
     Active Substance: MESALAMINE
  5. PREDNISOLONE. [Concomitant]
     Active Substance: PREDNISOLONE
  6. ALVEDON [Concomitant]
     Active Substance: ACETAMINOPHEN
  7. MOMETASONE [Concomitant]
     Active Substance: MOMETASONE
  8. TROMBYL [Concomitant]
     Active Substance: ASPIRIN
  9. OXASCAND [Concomitant]
     Active Substance: OXAZEPAM
  10. PROLIA [Suspect]
     Active Substance: DENOSUMAB
     Indication: OSTEOPOROSIS
     Dosage: 60 MG, Q6MO
     Route: 058
     Dates: start: 20160204, end: 20170913
  11. CILAXORAL [Concomitant]
     Active Substance: SODIUM PICOSULFATE
  12. FORLAX [Concomitant]
     Active Substance: POLYETHYLENE GLYCOL 4000
  13. FENTANYL. [Concomitant]
     Active Substance: FENTANYL
  14. PULMICORT TURBUHALER [Concomitant]
     Active Substance: BUDESONIDE
  15. KALCIPOS-D [Concomitant]
     Active Substance: CALCIUM CARBONATE\CHOLECALCIFEROL
  16. MIRTAZAPINE. [Concomitant]
     Active Substance: MIRTAZAPINE
  17. BETOLVEX [Concomitant]
     Active Substance: CYANOCOBALAMIN
  18. INDERAL [Concomitant]
     Active Substance: PROPRANOLOL HYDROCHLORIDE
  19. AMLODIPINE [Concomitant]
     Active Substance: AMLODIPINE BESYLATE
  20. CITALOPRAM [Concomitant]
     Active Substance: CITALOPRAM HYDROBROMIDE

REACTIONS (1)
  - Ecchymosis [Not Recovered/Not Resolved]

NARRATIVE: CASE EVENT DATE: 20170323
